FAERS Safety Report 5930516-8 (Version None)
Quarter: 2008Q4

REPORT INFORMATION
  Report Type: 
  Country: None (occurrence: None)
  Receive Date: 20081026
  Receipt Date: 20081017
  Transmission Date: 20090506
  Serious: Yes (Hospitalization)
  Sender: FDA-Public Use
  Company Number: PHHY2008BE25513

PATIENT
  Age: 63 Year
  Sex: Male

DRUGS (3)
  1. RASILEZ [Suspect]
     Indication: HYPERTENSION
     Dosage: 150 MG, UNK
     Route: 048
     Dates: start: 20080801, end: 20080922
  2. LISINOPRIL AND HYDROCHLOROTHIAZIDE [Concomitant]
  3. ATACAND [Concomitant]

REACTIONS (4)
  - CEREBRAL HAEMORRHAGE [None]
  - CEREBROVASCULAR ACCIDENT [None]
  - HEMIPARESIS [None]
  - VISUAL FIELD DEFECT [None]
